FAERS Safety Report 19166553 (Version 1)
Quarter: 2021Q2

REPORT INFORMATION
  Report Type: Spontaneous
  Country: US (occurrence: US)
  Receive Date: 20210422
  Receipt Date: 20210422
  Transmission Date: 20210717
  Serious: No
  Sender: FDA-Public Use
  Company Number: US-GLAXOSMITHKLINE-US2021084178

PATIENT
  Age: 56 Year
  Sex: Female

DRUGS (1)
  1. NUCALA [Suspect]
     Active Substance: MEPOLIZUMAB
     Indication: ASTHMA
     Dosage: 100 MG, Z EVERY 28 DAYS
     Dates: end: 20210120

REACTIONS (4)
  - Blood immunoglobulin E increased [Unknown]
  - Multiple allergies [Unknown]
  - Asthma [Unknown]
  - Eosinophil count abnormal [Unknown]

NARRATIVE: CASE EVENT DATE: 202006
